FAERS Safety Report 19793132 (Version 1)
Quarter: 2021Q3

REPORT INFORMATION
  Report Type: Other
  Country: NL (occurrence: NL)
  Receive Date: 20210906
  Receipt Date: 20210906
  Transmission Date: 20211014
  Serious: Yes (Disabling)
  Sender: FDA-Public Use
  Company Number: NL-APOTEX-2021AP042354

PATIENT
  Sex: Female

DRUGS (3)
  1. QUETIAPINE. [Suspect]
     Active Substance: QUETIAPINE
     Indication: RESTLESSNESS
     Dosage: 25 MILLIGRAM, QD,  25 MG (DIVIDE PILL BY FOUR) PER DAY
     Route: 065
     Dates: start: 2017
  2. PAROXETINE TABLET [Suspect]
     Active Substance: PAROXETINE
     Indication: ANXIETY
  3. PAROXETINE TABLET [Suspect]
     Active Substance: PAROXETINE
     Indication: DEPRESSION
     Dosage: 30 MILLIGRAM, QD, 30 MG PER DAY, MEDICINE PRESCRIBED BY DOCTOR: YES
     Route: 065
     Dates: start: 201703, end: 20190516

REACTIONS (2)
  - Electric shock sensation [Recovered/Resolved]
  - Fatigue [Recovering/Resolving]

NARRATIVE: CASE EVENT DATE: 2017
